FAERS Safety Report 12770504 (Version 1)
Quarter: 2016Q3

REPORT INFORMATION
  Report Type: Spontaneous
  Country: US (occurrence: US)
  Receive Date: 20160922
  Receipt Date: 20160922
  Transmission Date: 20161109
  Serious: Yes (Other)
  Sender: FDA-Public Use
  Company Number: None

PATIENT
  Age: 32 Year
  Sex: Female
  Weight: 132 kg

DRUGS (2)
  1. LEVOTHYROXINE, 25 [Suspect]
     Active Substance: LEVOTHYROXINE
     Indication: POST PROCEDURAL HYPOTHYROIDISM
     Route: 048
     Dates: start: 20160718, end: 20160906
  2. LEVOTHYROXINE, 200 MCG [Suspect]
     Active Substance: LEVOTHYROXINE
     Indication: POST PROCEDURAL HYPOTHYROIDISM
     Route: 048
     Dates: start: 20160718, end: 20160906

REACTIONS (10)
  - Constipation [None]
  - Palpitations [None]
  - Menstrual disorder [None]
  - Fatigue [None]
  - Hair disorder [None]
  - Local swelling [None]
  - Dysphagia [None]
  - Weight increased [None]
  - Menstruation irregular [None]
  - Dyspnoea [None]

NARRATIVE: CASE EVENT DATE: 20160906
